FAERS Safety Report 7948464-0 (Version None)
Quarter: 2011Q4

REPORT INFORMATION
  Report Type: 
  Country: None (occurrence: None)
  Receive Date: 20111130
  Receipt Date: 20111122
  Transmission Date: 20120403
  Serious: Yes (Hospitalization)
  Sender: FDA-Public Use
  Company Number: DE-ASTELLAS-2011EU008485

PATIENT
  Age: 62 Year
  Sex: Male

DRUGS (15)
  1. TACROLIMUS [Suspect]
     Dosage: 9 MG, UNKNOWN/D
     Route: 065
     Dates: start: 20080619
  2. AVANDIA [Concomitant]
     Dosage: 4 MG, UNKNOWN/D
     Route: 065
     Dates: start: 20080507, end: 20080527
  3. MYCOPHENOLATE MOFETIL [Suspect]
     Dosage: 750 MG, UNKNOWN/D
     Route: 065
     Dates: start: 20110523, end: 20110523
  4. NEURONTIN [Concomitant]
     Dosage: 100 MG, UNKNOWN/D
     Route: 065
     Dates: start: 20080423, end: 20080530
  5. TACROLIMUS [Suspect]
     Dosage: 11 MG, UNKNOWN/D
     Route: 065
     Dates: start: 20080515, end: 20080515
  6. TACROLIMUS [Suspect]
     Dosage: 7.25 MG, UNKNOWN/D
     Route: 065
     Dates: start: 20080516, end: 20080516
  7. TACROLIMUS [Suspect]
     Indication: RENAL TRANSPLANT
     Dosage: 12 MG, UNKNOWN/D
     Route: 065
     Dates: start: 20080510, end: 20080515
  8. TACROLIMUS [Suspect]
     Dosage: 10 MG, UNKNOWN/D
     Route: 065
     Dates: start: 20080520, end: 20080520
  9. VALGANCICLOVIR HYDROCHLORIDE [Suspect]
     Indication: ANTIVIRAL PROPHYLAXIS
     Dosage: 450 MG, UID/QD
     Route: 048
     Dates: start: 20080423
  10. TACROLIMUS [Suspect]
     Dosage: 5 MG, UNKNOWN/D
     Route: 065
     Dates: start: 20080517, end: 20080518
  11. MYCOPHENOLATE MOFETIL [Suspect]
     Dosage: 1500 MG, UNKNOWN/D
     Route: 065
     Dates: start: 20080524
  12. REPAGLINIDE [Concomitant]
     Dosage: 3 MG, UNKNOWN/D
     Route: 065
     Dates: start: 20080503, end: 20080507
  13. TACROLIMUS [Suspect]
     Dosage: 7.25 MG, UNKNOWN/D
     Route: 065
     Dates: start: 20080519, end: 20080519
  14. TACROLIMUS [Suspect]
     Dosage: 10 MG, UNKNOWN/D
     Route: 065
     Dates: start: 20080523
  15. MYCOPHENOLATE MOFETIL [Suspect]
     Dosage: 1500 MG, UNKNOWN/D
     Route: 065
     Dates: start: 20080414, end: 20080515

REACTIONS (3)
  - PYELONEPHRITIS [None]
  - TRANSPLANT REJECTION [None]
  - BENIGN PROSTATIC HYPERPLASIA [None]
